FAERS Safety Report 6177259-6 (Version None)
Quarter: 2009Q2

REPORT INFORMATION
  Report Type: 
  Country: None (occurrence: None)
  Receive Date: 20090504
  Receipt Date: 20090423
  Transmission Date: 20091009
  Serious: Yes (Hospitalization)
  Sender: FDA-Public Use
  Company Number: JP-ROCHE-629878

PATIENT
  Age: 66 Year
  Sex: Female

DRUGS (6)
  1. LUPRAC [Suspect]
     Indication: ATRIAL SEPTAL DEFECT
     Route: 048
     Dates: start: 20080901
  2. SILECE [Suspect]
     Indication: DRUG USE FOR UNKNOWN INDICATION
     Route: 048
     Dates: start: 20081101
  3. AMARYL [Suspect]
     Indication: DIABETES MELLITUS
     Route: 048
  4. AMLODIPINE [Suspect]
     Indication: ATRIAL SEPTAL DEFECT
     Route: 048
     Dates: start: 20080901
  5. ASPIRIN [Suspect]
     Indication: DRUG USE FOR UNKNOWN INDICATION
     Dosage: DRUG NAME REPORTED AS BABY ASPIRIN.
     Route: 048
     Dates: start: 20090201
  6. ONE SUSPECTED MEDICATION [Suspect]
     Dosage: DRUG NAME REPORTED AS KAIGEN KAZE CAPSULE (NON-PYRAZOLONE COLD DRUG WITH HERBAL MEDICATION)
     Route: 065
     Dates: start: 20090404

REACTIONS (1)
  - HEPATIC FUNCTION ABNORMAL [None]
